APPROVED DRUG PRODUCT: ALENDRONATE SODIUM
Active Ingredient: ALENDRONATE SODIUM
Strength: EQ 10MG BASE
Dosage Form/Route: TABLET;ORAL
Application: A090022 | Product #002 | TE Code: AB
Applicant: SUN PHARMACEUTICAL INDUSTRIES LTD
Approved: Sep 10, 2008 | RLD: No | RS: No | Type: RX